FAERS Safety Report 13743139 (Version 2)
Quarter: 2017Q3

REPORT INFORMATION
  Report Type: Report from Study
  Country: CA (occurrence: CA)
  Receive Date: 20170711
  Receipt Date: 20170726
  Transmission Date: 20171127
  Serious: Yes (Hospitalization)
  Sender: FDA-Public Use
  Company Number: CA-JNJFOC-20170704962

PATIENT
  Age: 45 Year
  Sex: Female
  Weight: 78 kg

DRUGS (2)
  1. IMURAN [Concomitant]
     Active Substance: AZATHIOPRINE
     Indication: IMMUNOSUPPRESSANT DRUG THERAPY
     Route: 048
  2. REMICADE [Suspect]
     Active Substance: INFLIXIMAB
     Indication: CROHN^S DISEASE
     Route: 042
     Dates: start: 20150820

REACTIONS (3)
  - Intestinal obstruction [Recovered/Resolved]
  - Small intestinal stenosis [Recovered/Resolved]
  - Postoperative abscess [Recovering/Resolving]

NARRATIVE: CASE EVENT DATE: 20170629
